FAERS Safety Report 4474851-1 (Version None)
Quarter: 2004Q3

REPORT INFORMATION
  Report Type: 
  Country: None (occurrence: None)
  Receive Date: 20040923
  Receipt Date: 20040702
  Transmission Date: 20050211
  Serious: No
  Sender: FDA-Public Use
  Company Number: USA40771796

PATIENT
  Age: 74 Year
  Sex: Female

DRUGS (5)
  1. FORTEO [Suspect]
     Indication: OSTEOPOROSIS
     Dates: start: 20040618
  2. LANOXIN [Concomitant]
  3. INDERAL [Concomitant]
  4. ACTOS [Concomitant]
  5. DEMADEX [Concomitant]

REACTIONS (6)
  - AGITATION [None]
  - BLOOD PRESSURE INCREASED [None]
  - FEELING ABNORMAL [None]
  - FLUID RETENTION [None]
  - HEADACHE [None]
  - WEIGHT INCREASED [None]
